FAERS Safety Report 10042591 (Version 1)
Quarter: 2014Q1

REPORT INFORMATION
  Report Type: Spontaneous
  Country: US (occurrence: None)
  Receive Date: 20140325
  Receipt Date: 20140325
  Transmission Date: 20141002
  Serious: Yes (Other)
  Sender: FDA-Public Use
  Company Number: SYM-2014-18688

PATIENT
  Age: 11 Year
  Sex: Female
  Weight: 49.9 kg

DRUGS (4)
  1. XENAZINE (TETRABENAZINE) (12.5 MILLIGRAM TABLETS) (TETRABENAZINE) [Suspect]
     Indication: TOURETTE^S DISORDER
     Route: 048
  2. XENAZINE (TETRABENAZINE) (12.5 MILLIGRAM TABLETS) (TETRABENAZINE) [Suspect]
     Indication: TIC
     Route: 048
  3. GEODON (ZIPRASIDONE HYDROCHLORIDE) (ZIPRASIDONE HYDROCHLORIDE) [Concomitant]
  4. FLUOVOXAMINE [Concomitant]

REACTIONS (5)
  - Restlessness [None]
  - Drooling [None]
  - Chills [None]
  - Speech disorder [None]
  - Tourette^s disorder [None]
